FAERS Safety Report 6264769-6 (Version None)
Quarter: 2009Q3

REPORT INFORMATION
  Report Type: 
  Country: None (occurrence: None)
  Receive Date: 20090710
  Receipt Date: 20090702
  Transmission Date: 20100115
  Serious: Yes (Other)
  Sender: FDA-Public Use
  Company Number: PHHY2009PE19048

PATIENT
  Sex: Female

DRUGS (4)
  1. EXELON [Suspect]
     Dosage: 10
     Route: 062
     Dates: start: 20090423, end: 20090507
  2. LOTRIAL [Concomitant]
     Indication: HYPERTENSION
     Dosage: 10MG/DAY
  3. ASPIRIN [Concomitant]
     Indication: PROPHYLAXIS
     Dosage: 85 MG/DAY
  4. CEBROCAL [Concomitant]
     Indication: CEREBRAL CIRCULATORY FAILURE
     Dosage: 500 MG/DAY

REACTIONS (1)
  - JAUNDICE [None]
